FAERS Safety Report 11831455 (Version 1)
Quarter: 2015Q4

REPORT INFORMATION
  Report Type: Spontaneous
  Country: IT (occurrence: IT)
  Receive Date: 20151214
  Receipt Date: 20151214
  Transmission Date: 20160305
  Serious: Yes (Other)
  Sender: FDA-Public Use
  Company Number: IT-TEVA-618126ISR

PATIENT
  Age: 3 Year
  Sex: Male

DRUGS (3)
  1. TOPOTECAN [Suspect]
     Active Substance: TOPOTECAN\TOPOTECAN HYDROCHLORIDE
     Indication: RETINOBLASTOMA
     Dosage: TWO CYCLES OF (SIX INFUSIONS OF 0.4MICROCG)
     Route: 013
  2. MELPHALAN [Suspect]
     Active Substance: MELPHALAN
     Indication: RETINOBLASTOMA
     Dosage: 10 INJECTIONS (20MICROG EACH ONE)
     Route: 050
  3. MELPHALAN [Suspect]
     Active Substance: MELPHALAN
     Indication: RETINOBLASTOMA
     Dosage: TWO CYCLES OF (SIX INFUSIONS OF 5MICROG)
     Route: 013

REACTIONS (4)
  - Hypotonia [Not Recovered/Not Resolved]
  - Venous thrombosis [Recovered/Resolved]
  - Lenticular opacities [Not Recovered/Not Resolved]
  - Chorioretinal atrophy [Not Recovered/Not Resolved]
